FAERS Safety Report 9988295 (Version 2)
Quarter: 2014Q1

REPORT INFORMATION
  Report Type: Spontaneous
  Country: US (occurrence: US)
  Receive Date: 20140310
  Receipt Date: 20140320
  Transmission Date: 20141002
  Serious: Yes (Life-Threatening, Hospitalization)
  Sender: FDA-Public Use
  Company Number: US-ROCHE-1355977

PATIENT
  Age: 54 Year
  Sex: Female

DRUGS (4)
  1. KADCYLA [Suspect]
     Indication: BREAST CANCER
     Route: 042
     Dates: start: 20140224, end: 20140224
  2. HERCEPTIN [Suspect]
     Indication: BREAST CANCER
     Route: 042
     Dates: start: 20130819, end: 20140210
  3. GEMZAR [Concomitant]
     Indication: BREAST CANCER
     Route: 042
     Dates: start: 20130819, end: 20140210
  4. ANASTROZOLE [Concomitant]
     Indication: BREAST CANCER
     Route: 048

REACTIONS (4)
  - Convulsion [Unknown]
  - Cough [Unknown]
  - Cardiac arrest [Unknown]
  - Cardiomyopathy [Recovered/Resolved with Sequelae]
